FAERS Safety Report 10837861 (Version 2)
Quarter: 2015Q2

REPORT INFORMATION
  Report Type: Report from Study
  Country: US (occurrence: US)
  Receive Date: 20150219
  Receipt Date: 20150508
  Transmission Date: 20150821
  Serious: No
  Sender: FDA-Public Use
  Company Number: US-GLAXOSMITHKLINE-US2015GSK022206

PATIENT
  Sex: Female

DRUGS (1)
  1. DUTASTERIDE + TAMSULOSIN CAPSULE [Suspect]
     Active Substance: DUTASTERIDE\TAMSULOSIN HYDROCHLORIDE
     Indication: NO ADVERSE EVENT
     Route: 067

REACTIONS (1)
  - Exposure during pregnancy [Unknown]
